FAERS Safety Report 4710486-0 (Version None)
Quarter: 2005Q3

REPORT INFORMATION
  Report Type: 
  Country: None (occurrence: None)
  Receive Date: 20050707
  Receipt Date: 20050617
  Transmission Date: 20060218
  Serious: Yes (Hospitalization)
  Sender: FDA-Public Use
  Company Number: US_0506118864

PATIENT
  Age: 8 Year
  Sex: Male

DRUGS (2)
  1. CEFACLOR [Suspect]
     Indication: INFECTION PROPHYLAXIS
     Dosage: 100 MG
     Dates: start: 20050614
  2. CALONAL                     (PARACETAMOL) [Concomitant]

REACTIONS (2)
  - ANAPHYLACTIC SHOCK [None]
  - BLOOD PRESSURE DECREASED [None]
